FAERS Safety Report 7900333-8 (Version None)
Quarter: 2011Q4

REPORT INFORMATION
  Report Type: 
  Country: None (occurrence: None)
  Receive Date: 20111104
  Receipt Date: 20111020
  Transmission Date: 20120403
  Serious: Yes (Death)
  Sender: FDA-Public Use
  Company Number: 1000025035

PATIENT
  Age: 90 Year
  Sex: Male

DRUGS (7)
  1. MEMANTINE HYDROCHLORIDE [Suspect]
     Indication: DEMENTIA ALZHEIMER'S TYPE
     Dosage: 5 MG (5 MG, 1 IN 1 D), 10 MG (10 MG, 1 IN 1 D)
     Dates: start: 20110827, end: 20110101
  2. MEMANTINE HYDROCHLORIDE [Suspect]
     Indication: DEMENTIA ALZHEIMER'S TYPE
     Dosage: 5 MG (5 MG, 1 IN 1 D), 10 MG (10 MG, 1 IN 1 D)
     Dates: start: 20110101, end: 20110101
  3. MEMANTINE HYDROCHLORIDE [Suspect]
     Indication: DEMENTIA ALZHEIMER'S TYPE
     Dosage: 15 MG (15 MG, 1 IN 1 D), 10 MG (10 MG, 1 IN 1 D)
     Dates: start: 20110101, end: 20110101
  4. YOKU-KAN-SAN (HERBAL EXTRACT) [Concomitant]
  5. AMARYL [Concomitant]
  6. ARICEPT [Concomitant]
  7. SEROQUEL (QUETIAPINE FUMARATE) (QUETIAPINE FUMARATE) [Concomitant]

REACTIONS (5)
  - SPUTUM RETENTION [None]
  - BREATH SOUNDS ABNORMAL [None]
  - DECREASED APPETITE [None]
  - RESPIRATORY ARREST [None]
  - BLOOD PRESSURE DECREASED [None]
